FAERS Safety Report 6451486-2 (Version None)
Quarter: 2009Q4

REPORT INFORMATION
  Report Type: 
  Country: None (occurrence: None)
  Receive Date: 20091123
  Receipt Date: 20090513
  Transmission Date: 20100525
  Serious: No
  Sender: FDA-Public Use
  Company Number: US-BRISTOL-MYERS SQUIBB COMPANY-14624191

PATIENT
  Sex: Female

DRUGS (3)
  1. AVALIDE [Suspect]
  2. LISINOPRIL [Suspect]
  3. BENICAR [Suspect]

REACTIONS (5)
  - COUGH [None]
  - DIZZINESS [None]
  - EYE SWELLING [None]
  - JOINT SWELLING [None]
  - OEDEMA PERIPHERAL [None]
